FAERS Safety Report 8511314-8 (Version None)
Quarter: 2012Q3

REPORT INFORMATION
  Report Type: 
  Country: None (occurrence: None)
  Receive Date: 20120716
  Receipt Date: 20120711
  Transmission Date: 20120928
  Serious: Yes (Life-Threatening, Other)
  Sender: FDA-Public Use
  Company Number: US-JNJFOC-20120705758

PATIENT
  Sex: Female

DRUGS (2)
  1. REMICADE [Suspect]
     Dosage: 2ND DOSE
     Route: 042
     Dates: start: 20111228
  2. REMICADE [Suspect]
     Indication: CROHN'S DISEASE
     Dosage: FIRST DOSE
     Route: 042
     Dates: start: 20111201

REACTIONS (16)
  - BALANCE DISORDER [None]
  - CONVULSION [None]
  - THYROID DISORDER [None]
  - ECCHYMOSIS [None]
  - MEMORY IMPAIRMENT [None]
  - BACK DISORDER [None]
  - TUBERCULOSIS [None]
  - LOSS OF CONSCIOUSNESS [None]
  - SUICIDAL IDEATION [None]
  - ACTIVITIES OF DAILY LIVING IMPAIRED [None]
  - SWELLING [None]
  - DISORIENTATION [None]
  - PAIN [None]
  - SKIN DISCOLOURATION [None]
  - DEPRESSION [None]
  - FALL [None]
